FAERS Safety Report 12822793 (Version 2)
Quarter: 2016Q4

REPORT INFORMATION
  Report Type: Spontaneous
  Country: US (occurrence: US)
  Receive Date: 20161007
  Receipt Date: 20161105
  Transmission Date: 20170207
  Serious: No
  Sender: FDA-Public Use
  Company Number: US-ASTRAZENECA-2016SF03280

PATIENT
  Sex: Female
  Weight: 61.2 kg

DRUGS (4)
  1. OXYGEN. [Concomitant]
     Active Substance: OXYGEN
     Indication: CHRONIC OBSTRUCTIVE PULMONARY DISEASE
     Dosage: 2.5L CONTINUOUSLY
     Route: 045
  2. TUDORZA PRESSAIR [Suspect]
     Active Substance: ACLIDINIUM BROMIDE
     Indication: CHRONIC OBSTRUCTIVE PULMONARY DISEASE
     Dosage: 400 MCG ONE PUFF TWICE PER DAY
     Route: 055
  3. TUDORZA PRESSAIR [Suspect]
     Active Substance: ACLIDINIUM BROMIDE
     Indication: ASTHMA
     Dosage: 400 MCG ONE PUFF TWICE PER DAY
     Route: 055
  4. OXYGEN. [Concomitant]
     Active Substance: OXYGEN
     Indication: CHRONIC OBSTRUCTIVE PULMONARY DISEASE
     Dosage: 3.0L CONTINUOUSLY
     Route: 045

REACTIONS (9)
  - Chronic obstructive pulmonary disease [Unknown]
  - Off label use [Unknown]
  - Feeling abnormal [Unknown]
  - Gait disturbance [Unknown]
  - Fatigue [Unknown]
  - Asthma [Unknown]
  - Drug dose omission [Unknown]
  - Product use issue [Unknown]
  - Intentional product misuse [Unknown]
